FAERS Safety Report 4971801-6 (Version None)
Quarter: 2006Q2

REPORT INFORMATION
  Report Type: 
  Country: None (occurrence: None)
  Receive Date: 20060413
  Receipt Date: 20060402
  Transmission Date: 20061013
  Serious: Yes (Hospitalization)
  Sender: FDA-Public Use
  Company Number: SA-JNJFOC-20060401921

PATIENT
  Age: 12 Year
  Sex: Female

DRUGS (3)
  1. REMICADE [Suspect]
     Route: 042
  2. REMICADE [Suspect]
     Indication: UVEITIS
     Dosage: WEEK 0,2,6 THEN EVERY 8 WEEKS  (10 INFUSIONS)
     Route: 042
  3. CYCLOSPORINE [Concomitant]
     Indication: UVEITIS
     Route: 048

REACTIONS (1)
  - CATARACT [None]
